FAERS Safety Report 23755975 (Version 1)
Quarter: 2024Q2

REPORT INFORMATION
  Report Type: Report from Study
  Country: US (occurrence: US)
  Receive Date: 20240418
  Receipt Date: 20240418
  Transmission Date: 20240716
  Serious: Yes (Other)
  Sender: FDA-Public Use
  Company Number: US-MYLANLABS-2024M1034294

PATIENT
  Age: 10 Year
  Sex: Male

DRUGS (8)
  1. CARBOPLATIN [Suspect]
     Active Substance: CARBOPLATIN
     Indication: Astrocytoma
     Dosage: UNK
     Route: 065
  2. CARBOPLATIN [Suspect]
     Active Substance: CARBOPLATIN
     Indication: Optic nerve neoplasm
  3. LENALIDOMIDE [Interacting]
     Active Substance: LENALIDOMIDE
     Indication: Astrocytoma
     Dosage: 25 MILLIGRAM/SQ. METER, QD (ON DAYS 1-21 EACH 28-DAY CYCLE)
     Route: 065
  4. LENALIDOMIDE [Interacting]
     Active Substance: LENALIDOMIDE
     Indication: Optic nerve neoplasm
  5. VINBLASTINE [Suspect]
     Active Substance: VINBLASTINE
     Indication: Astrocytoma
     Dosage: UNK
     Route: 065
  6. VINBLASTINE [Suspect]
     Active Substance: VINBLASTINE
     Indication: Optic nerve neoplasm
  7. TRAMETINIB [Interacting]
     Active Substance: TRAMETINIB
     Indication: Astrocytoma
     Dosage: 0.025 MILLIGRAM/KILOGRAM, QD
     Route: 065
  8. TRAMETINIB [Interacting]
     Active Substance: TRAMETINIB
     Indication: Optic nerve neoplasm

REACTIONS (6)
  - Drug ineffective [Unknown]
  - Disease progression [Unknown]
  - Drug interaction [Unknown]
  - Rash [Unknown]
  - Paronychia [Unknown]
  - Off label use [Unknown]
